FAERS Safety Report 8512618-5 (Version None)
Quarter: 2012Q2

REPORT INFORMATION
  Report Type: 
  Country: None (occurrence: None)
  Receive Date: 20120405
  Receipt Date: 20080910
  Transmission Date: 20120825
  Serious: Yes (Disabling, Other)
  Sender: FDA-Public Use
  Company Number: PHEH2008US07207

PATIENT
  Age: 65 Year
  Sex: Female
  Weight: 90.2 kg

DRUGS (17)
  1. FOSAMAX [Concomitant]
  2. CYMBALTA [Concomitant]
  3. SINGULAIR [Concomitant]
  4. PREMARIN [Concomitant]
  5. CLONAZEPAM [Concomitant]
  6. RISPERDAL [Concomitant]
  7. COMBIVENT [Concomitant]
  8. KLONOPIN [Concomitant]
  9. AMITRIPTYLINE HCL [Concomitant]
  10. BUPROPION HCL [Concomitant]
  11. RECLAST [Suspect]
     Indication: OSTEOPOROSIS
     Dosage: 5 MG,  YEARLY, INFUSION
     Dates: start: 20080805, end: 20080805
  12. MULTIVITAMINS 9ASCORBIC ACID, ERGOCALCIFEROL, FOLIC ACID, NICOTINAMIDE [Concomitant]
  13. IBUPROFEN [Concomitant]
  14. ADVAIR HFA [Concomitant]
  15. OSCAL 500-D (CALCIUM, COLECALCIFEROL) [Concomitant]
  16. PREVACID [Concomitant]
  17. LEVOTHYROXINE SODIUM [Concomitant]

REACTIONS (20)
  - OSTEOPOROSIS [None]
  - OSTEOARTHRITIS [None]
  - APPLICATION SITE PRURITUS [None]
  - BLOOD PARATHYROID HORMONE INCREASED [None]
  - CREPITATIONS [None]
  - ERYTHEMA INDURATUM [None]
  - RENAL DISORDER [None]
  - MUSCULOSKELETAL PAIN [None]
  - TEMPOROMANDIBULAR JOINT SYNDROME [None]
  - GAIT DISTURBANCE [None]
  - APPLICATION SITE ERYTHEMA [None]
  - BACK PAIN [None]
  - ARTHRALGIA [None]
  - PAIN [None]
  - GRIP STRENGTH DECREASED [None]
  - ROTATOR CUFF SYNDROME [None]
  - C-REACTIVE PROTEIN INCREASED [None]
  - RASH PUSTULAR [None]
  - FIBROMYALGIA [None]
  - JOINT RANGE OF MOTION DECREASED [None]
